FAERS Safety Report 10582346 (Version 1)
Quarter: 2014Q4

REPORT INFORMATION
  Report Type: Spontaneous
  Country: US (occurrence: US)
  Receive Date: 20141113
  Receipt Date: 20141113
  Transmission Date: 20150529
  Serious: No
  Sender: FDA-Public Use
  Company Number: US-MYLANLABS-2014S1017890

PATIENT
  Sex: Female

DRUGS (1)
  1. XULANE [Suspect]
     Active Substance: ETHINYL ESTRADIOL\NORELGESTROMIN
     Dosage: UNK
     Dates: start: 2014

REACTIONS (2)
  - Metrorrhagia [Not Recovered/Not Resolved]
  - Drug ineffective [Not Recovered/Not Resolved]

NARRATIVE: CASE EVENT DATE: 2014
